FAERS Safety Report 20245832 (Version 9)
Quarter: 2022Q3

REPORT INFORMATION
  Report Type: Report from Study
  Country: US (occurrence: US)
  Receive Date: 20211229
  Receipt Date: 20220824
  Transmission Date: 20221026
  Serious: Yes (Other)
  Sender: FDA-Public Use
  Company Number: US-NOVARTISPH-NVSC2021US295097

PATIENT
  Sex: Female

DRUGS (1)
  1. ENTRESTO [Suspect]
     Active Substance: SACUBITRIL\VALSARTAN
     Indication: Product used for unknown indication
     Dosage: 50 MG (24/26 MG: SACUBITRIL 24.3 MG, VALSARTAN 25.7 MG), BID
     Route: 065

REACTIONS (15)
  - Cardiac failure congestive [Unknown]
  - Insomnia [Recovering/Resolving]
  - Weight decreased [Unknown]
  - Fear of disease [Not Recovered/Not Resolved]
  - Stress [Unknown]
  - Condition aggravated [Unknown]
  - Depression [Unknown]
  - Nasopharyngitis [Recovering/Resolving]
  - Productive cough [Recovering/Resolving]
  - Localised infection [Recovering/Resolving]
  - Vision blurred [Unknown]
  - Arthropathy [Unknown]
  - Fatigue [Recovering/Resolving]
  - Hypotension [Not Recovered/Not Resolved]
  - Drug ineffective [Unknown]
